FAERS Safety Report 24588784 (Version 1)
Quarter: 2024Q4

REPORT INFORMATION
  Report Type: Report from Study
  Country: CN (occurrence: CN)
  Receive Date: 20241107
  Receipt Date: 20241107
  Transmission Date: 20250114
  Serious: Yes (Other)
  Sender: PFIZER
  Company Number: CN-PFIZER INC-202400294579

PATIENT
  Age: 1 Month
  Sex: Male
  Weight: 4.5 kg

DRUGS (2)
  1. RAPAMUNE [Suspect]
     Active Substance: SIROLIMUS
     Indication: Hyperinsulinaemia
     Dosage: 2.0 MG/M2, DAILY
     Route: 048
  2. OCTREOTIDE [Concomitant]
     Active Substance: OCTREOTIDE
     Indication: Hyperinsulinaemia
     Dosage: 20 UG/KG
     Route: 058

REACTIONS (1)
  - Alanine aminotransferase increased [Recovered/Resolved]
